FAERS Safety Report 21345266 (Version 1)
Quarter: 2022Q3

REPORT INFORMATION
  Report Type: Spontaneous
  Country: IE (occurrence: IE)
  Receive Date: 20220916
  Receipt Date: 20220916
  Transmission Date: 20221026
  Serious: Yes (Disabling)
  Sender: FDA-Public Use
  Company Number: None

PATIENT
  Age: 65 Year
  Sex: Male

DRUGS (11)
  1. TICAGRELOR [Suspect]
     Active Substance: TICAGRELOR
     Indication: Acute myocardial infarction
     Dosage: 90 MILLIGRAM, BID (ONE YEAR DUAL ANTIPLATELET THERAPY)
     Route: 048
     Dates: end: 20220610
  2. TICAGRELOR [Suspect]
     Active Substance: TICAGRELOR
     Indication: Percutaneous coronary intervention
  3. ATORVASTATIN [Concomitant]
     Active Substance: ATORVASTATIN
     Dosage: 10 MILLIGRAM, QD (LIFE LONG)
     Route: 048
  4. ASPIRIN [Concomitant]
     Active Substance: ASPIRIN
     Dosage: 75 MILLIGRAM, QD (12/12 1 YR DUAL ANTIPLATELET THERAPY (DAPT))
     Route: 048
  5. INVOKANA [Concomitant]
     Active Substance: CANAGLIFLOZIN
     Dosage: 100 MILLIGRAM, QD (6/52)
     Route: 048
  6. EZETIMIBE [Concomitant]
     Active Substance: EZETIMIBE
     Dosage: 10 MILLIGRAM, QD (LIFE LONG)
     Route: 048
  7. METFORMIN [Concomitant]
     Active Substance: METFORMIN HYDROCHLORIDE
     Dosage: 500 MILLIGRAM, QD (6/52)
     Route: 048
  8. BISOPROLOL [Concomitant]
     Active Substance: BISOPROLOL
     Dosage: 2.5 MILLIGRAM, QD (6/52)
     Route: 048
  9. OMEPRAZOLE [Concomitant]
     Active Substance: OMEPRAZOLE
     Dosage: 40 MILLIGRAM, QD (6/52)
     Route: 048
  10. MAGNESIUM [Concomitant]
     Active Substance: MAGNESIUM
     Dosage: UNK, QD(24 HOURS),1 SACHET X 2/52
     Route: 048
  11. ACETAMINOPHEN [Concomitant]
     Active Substance: ACETAMINOPHEN
     Dosage: 1 GRAM, QD (1/52)
     Route: 048

REACTIONS (1)
  - Dyspnoea at rest [Recovered/Resolved]

NARRATIVE: CASE EVENT DATE: 20220401
